FAERS Safety Report 10186749 (Version 2)
Quarter: 2014Q2

REPORT INFORMATION
  Report Type: Report from Study
  Country: US (occurrence: US)
  Receive Date: 20140521
  Receipt Date: 20140623
  Transmission Date: 20141212
  Serious: Yes (Other)
  Sender: FDA-Public Use
  Company Number: PHEH2014US010233

PATIENT
  Sex: Female
  Weight: 119.73 kg

DRUGS (2)
  1. GILENYA [Suspect]
     Indication: MULTIPLE SCLEROSIS
     Dosage: 0.5 MG, QD
     Route: 048
     Dates: start: 20111111
  2. AMPYRA [Concomitant]

REACTIONS (7)
  - Lower limb fracture [Unknown]
  - Limb discomfort [Unknown]
  - Skin ulcer [Unknown]
  - Bladder disorder [Unknown]
  - Muscle spasms [Unknown]
  - Fatigue [Unknown]
  - Grip strength decreased [Unknown]
